FAERS Safety Report 7415960-4 (Version None)
Quarter: 2011Q2

REPORT INFORMATION
  Report Type: 
  Country: None (occurrence: None)
  Receive Date: 20110414
  Receipt Date: 20110330
  Transmission Date: 20111010
  Serious: Yes (Death, Other)
  Sender: FDA-Public Use
  Company Number: GB-GENENTECH-296127

PATIENT
  Sex: Female
  Weight: 71 kg

DRUGS (6)
  1. MABTHERA [Suspect]
     Indication: SYSTEMIC LUPUS ERYTHEMATOSUS
     Dosage: 1 G, X2
     Route: 065
     Dates: start: 20090501, end: 20090601
  2. METHYLPREDNISOLONE [Concomitant]
     Indication: ARTHRITIS
     Dosage: 2 MG, QD
     Route: 042
     Dates: start: 20080101
  3. CORTICOSTEROIDS (UNK INGREDIENTS) [Concomitant]
     Indication: PRODUCT USED FOR UNKNOWN INDICATION
  4. PREDNISOLONE [Concomitant]
     Indication: PRODUCT USED FOR UNKNOWN INDICATION
     Dosage: 10 MG, QD
     Route: 048
     Dates: start: 20080101
  5. AZATHIOPRINE [Concomitant]
     Indication: PERICARDITIS
     Dosage: 150 MG, QD
     Dates: start: 20091201
  6. METHOTREXATE [Concomitant]
     Indication: PRODUCT USED FOR UNKNOWN INDICATION

REACTIONS (11)
  - PNEUMONIA [None]
  - HERPES ZOSTER [None]
  - HEMIPARESIS [None]
  - DYSKINESIA [None]
  - ALTERED STATE OF CONSCIOUSNESS [None]
  - JC VIRUS INFECTION [None]
  - LYMPHOPENIA [None]
  - CELLULITIS [None]
  - PROGRESSIVE MULTIFOCAL LEUKOENCEPHALOPATHY [None]
  - ATELECTASIS [None]
  - ASTHENIA [None]
